FAERS Safety Report 17882355 (Version 2)
Quarter: 2021Q2

REPORT INFORMATION
  Report Type: Spontaneous
  Country: US (occurrence: US)
  Receive Date: 20200610
  Receipt Date: 20210528
  Transmission Date: 20210717
  Serious: No
  Sender: FDA-Public Use
  Company Number: US-PFIZER INC-2020224553

PATIENT
  Age: 51 Year
  Sex: Female
  Weight: 83 kg

DRUGS (1)
  1. DOXYCYCLINE HYCLATE. [Suspect]
     Active Substance: DOXYCYCLINE HYCLATE
     Dosage: 100 MG, 2X/DAY

REACTIONS (3)
  - Lip swelling [Unknown]
  - Blister [Not Recovered/Not Resolved]
  - Swelling face [Unknown]
